FAERS Safety Report 17565464 (Version 1)
Quarter: 2020Q1

REPORT INFORMATION
  Report Type: Spontaneous
  Country: US (occurrence: US)
  Receive Date: 20200320
  Receipt Date: 20200320
  Transmission Date: 20200409
  Serious: Yes (Hospitalization)
  Sender: FDA-Public Use
  Company Number: US-VERTEX PHARMACEUTICALS-2020-005630

PATIENT
  Age: 28 Year
  Sex: Male
  Weight: 59 kg

DRUGS (3)
  1. SYMDEKO [Suspect]
     Active Substance: IVACAFTOR\TEZACAFTOR
     Indication: CYSTIC FIBROSIS
     Dosage: UNKNOWN
     Route: 048
  2. TOBRAMYCIN. [Concomitant]
     Active Substance: TOBRAMYCIN
     Dosage: UNK
  3. CAYSTON [Concomitant]
     Active Substance: AZTREONAM
     Dosage: UNK

REACTIONS (2)
  - Fatigue [Unknown]
  - Influenza [Recovered/Resolved]

NARRATIVE: CASE EVENT DATE: 20200204
